FAERS Safety Report 5717856-2 (Version None)
Quarter: 2008Q2

REPORT INFORMATION
  Report Type: 
  Country: None (occurrence: None)
  Receive Date: 20080425
  Receipt Date: 20080414
  Transmission Date: 20081010
  Serious: Yes (Hospitalization, Other)
  Sender: FDA-Public Use
  Company Number: US-JNJFOC-20080405672

PATIENT
  Sex: Female
  Weight: 68.04 kg

DRUGS (13)
  1. LEVAQUIN [Suspect]
     Indication: INFECTION
     Route: 048
  2. CYMBALTA [Suspect]
     Indication: DEPRESSION
     Route: 048
  3. ENBREL [Suspect]
     Indication: RHEUMATOID ARTHRITIS
     Route: 058
  4. PEPCID [Concomitant]
     Indication: DYSPEPSIA
     Route: 048
  5. SENOKOT [Concomitant]
     Indication: CONSTIPATION
     Route: 048
  6. LIDODERM [Concomitant]
     Indication: PAIN
     Route: 062
  7. TIGER BALM [Concomitant]
     Indication: PAIN
     Route: 061
  8. DURAGESIC-100 [Concomitant]
     Route: 062
  9. DURAGESIC-100 [Concomitant]
     Indication: PAIN
     Route: 062
  10. VALIUM [Concomitant]
     Indication: MUSCLE SPASMS
     Route: 048
  11. ZOLOFT [Concomitant]
     Indication: DEPRESSION
     Route: 048
  12. RESTORIL [Concomitant]
     Indication: SLEEP DISORDER
     Route: 048
  13. COMPAZINE [Concomitant]
     Indication: NAUSEA
     Route: 054

REACTIONS (5)
  - NAUSEA [None]
  - PSORIASIS [None]
  - TREMOR [None]
  - URTICARIA [None]
  - WEIGHT INCREASED [None]
